FAERS Safety Report 23091756 (Version 1)
Quarter: 2023Q4

REPORT INFORMATION
  Report Type: Spontaneous
  Country: US (occurrence: US)
  Receive Date: 20231020
  Receipt Date: 20231020
  Transmission Date: 20240109
  Serious: No
  Sender: FDA-Public Use
  Company Number: US-SA-SAC20231016001063

PATIENT
  Age: 46 Year
  Sex: Female

DRUGS (1)
  1. DUPIXENT [Suspect]
     Active Substance: DUPILUMAB
     Indication: Dermatitis atopic
     Dosage: 300 MG QOW
     Route: 058

REACTIONS (10)
  - Psoriasis [Unknown]
  - Skin burning sensation [Unknown]
  - Sleep disorder [Unknown]
  - Dermatitis atopic [Unknown]
  - Skin fissures [Unknown]
  - Dry skin [Unknown]
  - Skin discolouration [Unknown]
  - Rash [Unknown]
  - Therapeutic response shortened [Unknown]
  - Therapeutic product effect delayed [Unknown]
